FAERS Safety Report 12529890 (Version 5)
Quarter: 2018Q3

REPORT INFORMATION
  Report Type: Spontaneous
  Country: GB (occurrence: GB)
  Receive Date: 20160706
  Receipt Date: 20180907
  Transmission Date: 20181010
  Serious: Yes (Other)
  Sender: FDA-Public Use
  Company Number: GB-JNJFOC-20160621857

PATIENT
  Age: 17 Year
  Sex: Female

DRUGS (9)
  1. PARACETAMOL [Suspect]
     Active Substance: ACETAMINOPHEN
     Route: 065
  2. PAROXETINE. [Suspect]
     Active Substance: PAROXETINE
     Indication: PRODUCT USED FOR UNKNOWN INDICATION
     Route: 065
     Dates: start: 19950512
  3. SEROXAT [Suspect]
     Active Substance: PAROXETINE HYDROCHLORIDE
     Indication: DEPRESSION
     Route: 065
  4. PARACETAMOL [Suspect]
     Active Substance: ACETAMINOPHEN
     Indication: PRODUCT USED FOR UNKNOWN INDICATION
     Route: 065
  5. PAXIL [Suspect]
     Active Substance: PAROXETINE HYDROCHLORIDE
     Indication: DEPRESSION
     Route: 065
     Dates: start: 19950512
  6. ALCOHOL. [Suspect]
     Active Substance: ALCOHOL
     Indication: PRODUCT USED FOR UNKNOWN INDICATION
     Route: 065
  7. IMIPRAMINE [Concomitant]
     Active Substance: IMIPRAMINE
     Indication: PRODUCT USED FOR UNKNOWN INDICATION
     Dosage: FREQUENCY OF PRODUCT : 1N
     Route: 065
     Dates: start: 19950922
  8. PROZAC [Concomitant]
     Active Substance: FLUOXETINE HYDROCHLORIDE
     Indication: PRODUCT USED FOR UNKNOWN INDICATION
     Route: 065
     Dates: start: 19960131, end: 19990101
  9. ST. JOHN^S WORT [Concomitant]
     Active Substance: ST. JOHN^S WORT
     Indication: PRODUCT USED FOR UNKNOWN INDICATION
     Route: 065
     Dates: start: 19990101, end: 20050101

REACTIONS (15)
  - Overdose [Unknown]
  - Suicide attempt [Unknown]
  - Depression [Unknown]
  - Aggression [Unknown]
  - Social avoidant behaviour [Unknown]
  - Binge eating [Unknown]
  - Hunger [Unknown]
  - Fatigue [Unknown]
  - Mood swings [Unknown]
  - Crying [Unknown]
  - Derealisation [Unknown]
  - Drug withdrawal syndrome [Unknown]
  - Anxiety [Recovered/Resolved]
  - Tearfulness [Unknown]
  - Nightmare [Unknown]

NARRATIVE: CASE EVENT DATE: 19950523
